FAERS Safety Report 10929659 (Version 1)
Quarter: 2015Q1

REPORT INFORMATION
  Report Type: Spontaneous
  Country: CO (occurrence: CO)
  Receive Date: 20150319
  Receipt Date: 20150319
  Transmission Date: 20150721
  Serious: Yes (Other)
  Sender: FDA-Public Use
  Company Number: CO-PFIZER INC-2015093991

PATIENT
  Age: 88 Year
  Sex: Female

DRUGS (1)
  1. XALATAN [Suspect]
     Active Substance: LATANOPROST
     Indication: GLAUCOMA
     Dosage: 1 DF, DAILY
     Route: 047

REACTIONS (2)
  - Hearing impaired [Not Recovered/Not Resolved]
  - Condition aggravated [Not Recovered/Not Resolved]
